FAERS Safety Report 9754984 (Version 1)
Quarter: 2013Q4

REPORT INFORMATION
  Report Type: Spontaneous
  Country: US (occurrence: US)
  Receive Date: 20131213
  Receipt Date: 20131213
  Transmission Date: 20140711
  Serious: No
  Sender: FDA-Public Use
  Company Number: US-GLAXOSMITHKLINE-A1009707A

PATIENT
  Age: 78 Year
  Sex: Female

DRUGS (1)
  1. NICODERM CQ 21MG [Suspect]
     Indication: EX-TOBACCO USER
     Dates: start: 20130109, end: 20130114

REACTIONS (3)
  - Tremor [Recovered/Resolved]
  - Psychomotor hyperactivity [Recovered/Resolved]
  - Drug administration error [Unknown]
